FAERS Safety Report 7689643-X (Version None)
Quarter: 2011Q3

REPORT INFORMATION
  Report Type: 
  Country: None (occurrence: None)
  Receive Date: 20110817
  Receipt Date: 20110810
  Transmission Date: 20111222
  Serious: Yes (Hospitalization, Other)
  Sender: FDA-Public Use
  Company Number: BR-ROCHE-717115

PATIENT
  Sex: Female
  Weight: 60 kg

DRUGS (22)
  1. OMEPRAZOLE [Concomitant]
  2. TRAMADOL HCL [Concomitant]
  3. TOCILIZUMAB [Suspect]
     Route: 042
     Dates: start: 20100110
  4. METFORMIN [Concomitant]
  5. PANTOPRAZOLE [Concomitant]
  6. LEVOTHYROXINE SODIUM [Concomitant]
  7. TOCILIZUMAB [Suspect]
     Route: 042
     Dates: start: 20101012
  8. TOCILIZUMAB [Suspect]
     Route: 042
     Dates: start: 20101209
  9. CITONEURIN [Concomitant]
  10. FLUOXETINE HCL [Concomitant]
  11. TOCILIZUMAB [Suspect]
     Route: 042
     Dates: start: 20100912
  12. METHOTREXATE [Concomitant]
  13. CARBOLITIUM [Concomitant]
     Indication: DEPRESSION
  14. TOCILIZUMAB [Suspect]
     Indication: RHEUMATOID ARTHRITIS
     Dosage: ROUTE: ENDOVENOUS; FORM: INFUSION
     Route: 042
     Dates: start: 20100513
  15. TOCILIZUMAB [Suspect]
     Route: 042
     Dates: start: 20100712
  16. LEVOTHYROXINE SODIUM [Concomitant]
  17. CARBAMAZEPINE [Concomitant]
     Indication: DEPRESSION
     Dosage: AT NIGHT
  18. TOCILIZUMAB [Suspect]
     Route: 042
     Dates: start: 20100812
  19. TOCILIZUMAB [Suspect]
     Route: 042
     Dates: start: 20101101
  20. INSULIN [Concomitant]
     Dosage: 26 U/DAY
  21. CLONAZEPAM [Concomitant]
  22. PREDNISONE [Concomitant]

REACTIONS (13)
  - DRY SKIN [None]
  - DEPRESSION [None]
  - THERAPEUTIC RESPONSE DECREASED [None]
  - PETECHIAE [None]
  - NERVOUSNESS [None]
  - LOWER LIMB FRACTURE [None]
  - JOINT SWELLING [None]
  - OEDEMA PERIPHERAL [None]
  - BREAST DISORDER [None]
  - BACTERIAL INFECTION [None]
  - PAIN [None]
  - ARTHRALGIA [None]
  - HAND DEFORMITY [None]
